FAERS Safety Report 10934911 (Version 1)
Quarter: 2015Q1

REPORT INFORMATION
  Report Type: Spontaneous
  Country: DE (occurrence: DE)
  Receive Date: 20150320
  Receipt Date: 20150320
  Transmission Date: 20150721
  Serious: Yes (Disabling)
  Sender: FDA-Public Use
  Company Number: DE-ASTRAZENECA-2015SE23792

PATIENT
  Age: 22558 Day
  Sex: Female
  Weight: 68 kg

DRUGS (2)
  1. ATACAND [Suspect]
     Active Substance: CANDESARTAN CILEXETIL
     Indication: ESSENTIAL HYPERTENSION
     Route: 048
     Dates: start: 200507, end: 20140830
  2. CORNEREGEL [Suspect]
     Active Substance: DEXPANTHENOL
     Indication: CONJUNCTIVITIS
     Dosage: EVERY TWO HOURS
     Route: 047
     Dates: start: 201209, end: 20141011

REACTIONS (9)
  - Angioedema [Not Recovered/Not Resolved]
  - Eye inflammation [Not Recovered/Not Resolved]
  - Neurodermatitis [Not Recovered/Not Resolved]
  - Epistaxis [Not Recovered/Not Resolved]
  - Eye discharge [Not Recovered/Not Resolved]
  - Ocular icterus [Not Recovered/Not Resolved]
  - Acidosis [Not Recovered/Not Resolved]
  - Sinusitis [Not Recovered/Not Resolved]
  - Conjunctival haemorrhage [Not Recovered/Not Resolved]

NARRATIVE: CASE EVENT DATE: 20130725
